FAERS Safety Report 16789050 (Version 2)
Quarter: 2019Q3

REPORT INFORMATION
  Report Type: Report from Study
  Country: US (occurrence: US)
  Receive Date: 20190910
  Receipt Date: 20190918
  Transmission Date: 20191005
  Serious: Yes (Hospitalization, Other)
  Sender: FDA-Public Use
  Company Number: US-SA-2019SA092016

PATIENT
  Age: 21 Year
  Sex: Male
  Weight: 83 kg

DRUGS (15)
  1. ASCORBIC ACID. [Concomitant]
     Active Substance: ASCORBIC ACID
     Dosage: 1 DF, BID
     Route: 048
  2. HEMLIBRA [Concomitant]
     Active Substance: EMICIZUMAB-KXWH
     Dosage: UNK UNK
     Route: 065
     Dates: start: 20190717, end: 20190731
  3. ALEMTUZUMAB [Suspect]
     Active Substance: ALEMTUZUMAB
     Indication: MULTIPLE SCLEROSIS
     Dosage: UNK, UNK
     Route: 041
     Dates: start: 201805, end: 201805
  4. CALCIUM + VITAMIN D [CALCIUM CARBONATE;COLECALCIFEROL] [Concomitant]
     Dosage: 2 DF, Q12H (250 MG, 125 INTI UNITS)
     Route: 048
  5. GABAPENTIN. [Concomitant]
     Active Substance: GABAPENTIN
     Dosage: 2 DF, Q6H
     Route: 048
  6. PREDNISONE. [Concomitant]
     Active Substance: PREDNISONE
     Dosage: 1.5 MG/KG, UNK
     Route: 065
  7. NOVOSEVEN [Concomitant]
     Active Substance: COAGULATION FACTOR VIIA RECOMBINANT HUMAN
     Dosage: UNK, UNK
     Route: 065
  8. ZINC SULFATE. [Concomitant]
     Active Substance: ZINC SULFATE
     Dosage: 1 DF, QD
     Route: 048
  9. AMICAR [Concomitant]
     Active Substance: AMINOCAPROIC ACID
     Dosage: UNK, UNK
     Route: 041
     Dates: start: 20190403, end: 20190412
  10. ESOMEPRAZOLE. [Concomitant]
     Active Substance: ESOMEPRAZOLE MAGNESIUM
     Dosage: 1 DF, QD
     Route: 048
  11. VITAMIN A NOS [Concomitant]
     Active Substance: VITAMIN A
     Dosage: 1 DF, QD
     Route: 048
  12. KCENTRA [Concomitant]
     Active Substance: COAGULATION FACTOR IX HUMAN\COAGULATION FACTOR VII HUMAN\COAGULATION FACTOR X HUMAN\PROTEIN C\PROTEIN S HUMAN\PROTHROMBIN
     Dosage: UNK, UNK
     Route: 065
     Dates: start: 20190223, end: 20190223
  13. HEMLIBRA [Concomitant]
     Active Substance: EMICIZUMAB-KXWH
     Dosage: UNK, UNK
     Route: 065
     Dates: start: 20190607, end: 20190701
  14. PREDNISONE. [Concomitant]
     Active Substance: PREDNISONE
     Dosage: 1 DF, QD
     Route: 048
  15. KCENTRA [Concomitant]
     Active Substance: COAGULATION FACTOR IX HUMAN\COAGULATION FACTOR VII HUMAN\COAGULATION FACTOR X HUMAN\PROTEIN C\PROTEIN S HUMAN\PROTHROMBIN
     Dosage: UNK, UNK
     Route: 065
     Dates: start: 20190224

REACTIONS (27)
  - Neutrophil count decreased [Recovering/Resolving]
  - Oedema [Unknown]
  - Neutrophil percentage decreased [Unknown]
  - Coagulopathy [Unknown]
  - Mean cell haemoglobin concentration decreased [Unknown]
  - Anaemia of chronic disease [Recovered/Resolved]
  - Haematuria [Unknown]
  - Hydronephrosis [Unknown]
  - Immature granulocyte count increased [Unknown]
  - Mean cell haemoglobin decreased [Unknown]
  - Ecchymosis [Unknown]
  - Haemorrhage [Unknown]
  - Compartment syndrome [Unknown]
  - Red cell distribution width increased [Unknown]
  - Costovertebral angle tenderness [Unknown]
  - Palpitations [Unknown]
  - Peripheral swelling [Unknown]
  - Hypoaesthesia [Unknown]
  - Neutropenia [Recovering/Resolving]
  - Abdominal pain [Unknown]
  - Monocyte percentage increased [Unknown]
  - Thrombosis [Recovered/Resolved]
  - Pyelonephritis [Unknown]
  - Immature granulocyte percentage increased [Unknown]
  - White blood cell count decreased [Unknown]
  - Anti factor VIII antibody increased [Recovering/Resolving]
  - Normochromic normocytic anaemia [Recovered/Resolved]

NARRATIVE: CASE EVENT DATE: 2019
